FAERS Safety Report 19655470 (Version 1)
Quarter: 2021Q3

REPORT INFORMATION
  Report Type: Spontaneous
  Country: US (occurrence: US)
  Receive Date: 20210803
  Receipt Date: 20210803
  Transmission Date: 20211014
  Serious: Yes (Hospitalization, Other)
  Sender: FDA-Public Use
  Company Number: None

PATIENT
  Sex: Male

DRUGS (9)
  1. ZOLOFT [Concomitant]
     Active Substance: SERTRALINE HYDROCHLORIDE
  2. DILANTIN [Concomitant]
     Active Substance: PHENYTOIN
  3. VITAMIN B COMPLEX [Concomitant]
     Active Substance: CYANOCOBALAMIN\DEXPANTHENOL\NIACINAMIDE\PYRIDOXINE HYDROCHLORIDE\RIBOFLAVIN 5^-PHOSPHATE SODIUM\THIAMINE HYDROCHLORIDE\VITAMIN B COMPLEX
  4. ESCITALOPRAM [Concomitant]
     Active Substance: ESCITALOPRAM OXALATE
  5. PANTOPRAZOLE [Concomitant]
     Active Substance: PANTOPRAZOLE
  6. XELJANZ [Suspect]
     Active Substance: TOFACITINIB CITRATE
     Indication: COLITIS ULCERATIVE
     Route: 048
     Dates: start: 20190710
  7. BRIVIACT [Concomitant]
     Active Substance: BRIVARACETAM
  8. VITAMIN B12 [Concomitant]
     Active Substance: CYANOCOBALAMIN
  9. OXTELLAR XR [Concomitant]
     Active Substance: OXCARBAZEPINE

REACTIONS (12)
  - Haemorrhage [None]
  - Depression [None]
  - Partial seizures [None]
  - Stress [None]
  - Unhealthy diet [None]
  - Fall [None]
  - Spinal fracture [None]
  - Dehydration [None]
  - Post-traumatic stress disorder [None]
  - Fatigue [None]
  - Constipation [None]
  - Rectal haemorrhage [None]
